FAERS Safety Report 15481682 (Version 1)
Quarter: 2018Q4

REPORT INFORMATION
  Report Type: Other
  Country: GB (occurrence: GB)
  Receive Date: 20181010
  Receipt Date: 20181010
  Transmission Date: 20190205
  Serious: Yes (Other)
  Sender: FDA-Public Use
  Company Number: GB-ASPEN-GLO2017GB011432

PATIENT
  Age: 49 Year
  Sex: Female

DRUGS (3)
  1. DEXAMETHASONE. [Suspect]
     Active Substance: DEXAMETHASONE
     Indication: HENOCH-SCHONLEIN PURPURA
     Dosage: DOSAGE FORM: UNSPECIFIED, ON DAYS 1-4 AND DAYS 8-11,
     Route: 048
  2. BORTEZOMIB. [Suspect]
     Active Substance: BORTEZOMIB
     Indication: HENOCH-SCHONLEIN PURPURA
     Dosage: 1.3 MG/M2, LYOPHILIZED POWDER, ON DAYS 1, 4, 8 AND 11 OF EVERY 21-DAY CYCLE (RECEIVED 6 CYCLES)
     Route: 058
  3. PREDNISOLONE. [Concomitant]
     Active Substance: PREDNISOLONE
     Indication: PRODUCT USED FOR UNKNOWN INDICATION
     Dosage: UNK
     Route: 065

REACTIONS (3)
  - Off label use [Unknown]
  - Product use in unapproved indication [Unknown]
  - Pneumonia [Unknown]
